FAERS Safety Report 6207940-1 (Version None)
Quarter: 2009Q2

REPORT INFORMATION
  Report Type: 
  Country: None (occurrence: None)
  Receive Date: 20090529
  Receipt Date: 20080617
  Transmission Date: 20091009
  Serious: No
  Sender: FDA-Public Use
  Company Number: A0730184A

PATIENT
  Sex: Male

DRUGS (4)
  1. VENTOLIN [Suspect]
     Indication: ASTHMA
     Dosage: 2PUFF SIX TIMES PER DAY
     Route: 055
     Dates: start: 20080401
  2. ADVAIR HFA [Concomitant]
  3. PREDNISONE [Concomitant]
  4. SINGULAIR [Concomitant]

REACTIONS (9)
  - ABDOMINAL PAIN UPPER [None]
  - ANOREXIA [None]
  - DISABILITY [None]
  - DRUG INEFFECTIVE [None]
  - DYSGEUSIA [None]
  - HEADACHE [None]
  - ILL-DEFINED DISORDER [None]
  - NAUSEA [None]
  - PRODUCT QUALITY ISSUE [None]
